FAERS Safety Report 5510366-7 (Version None)
Quarter: 2007Q4

REPORT INFORMATION
  Report Type: 
  Country: None (occurrence: None)
  Receive Date: 20071108
  Receipt Date: 20071027
  Transmission Date: 20080405
  Serious: Yes (Hospitalization, Other)
  Sender: FDA-Public Use
  Company Number: US-PFIZER INC-2007081290

PATIENT
  Age: 47 Year
  Sex: Male
  Weight: 108.9 kg

DRUGS (4)
  1. CADUET [Suspect]
  2. TOPROL-XL [Suspect]
     Indication: HYPERTENSION
  3. TOPAMAX [Suspect]
  4. ALL OTHER THERAPEUTIC PRODUCTS [Suspect]

REACTIONS (6)
  - OVERDOSE [None]
  - RENAL FAILURE [None]
  - RESPIRATORY FAILURE [None]
  - SHOCK [None]
  - SUICIDAL IDEATION [None]
  - SUICIDE ATTEMPT [None]
